FAERS Safety Report 4521427-3 (Version None)
Quarter: 2004Q4

REPORT INFORMATION
  Report Type: 
  Country: None (occurrence: None)
  Receive Date: 20041028
  Receipt Date: 20031017
  Transmission Date: 20050328
  Serious: Yes (Disabling, Other)
  Sender: FDA-Public Use
  Company Number: HQWYE326117OCT03

PATIENT
  Age: 58 Year
  Sex: Female
  Weight: 57.2 kg

DRUGS (4)
  1. PREMARIN [Suspect]
     Indication: MENOPAUSAL SYMPTOMS
     Dosage: 0.625 MG DAILY, ORAL
     Route: 048
     Dates: start: 19880101, end: 20030901
  2. LIPITOR [Concomitant]
  3. TARKA [Concomitant]
  4. HYDROCHLOROTHIAZIDE [Concomitant]

REACTIONS (1)
  - BREAST CANCER FEMALE [None]
